FAERS Safety Report 4355147-5 (Version None)
Quarter: 2004Q2

REPORT INFORMATION
  Report Type: 
  Country: None (occurrence: None)
  Receive Date: 20040510
  Receipt Date: 20040503
  Transmission Date: 20050107
  Serious: Yes (Hospitalization)
  Sender: FDA-Public Use
  Company Number: 200411778FR

PATIENT
  Age: 84 Year
  Sex: Male

DRUGS (4)
  1. KETEK [Suspect]
     Indication: PNEUMONIA
     Route: 048
     Dates: start: 20040304, end: 20040312
  2. GLYBURIDE [Suspect]
     Indication: DIABETES MELLITUS NON-INSULIN-DEPENDENT
     Route: 048
     Dates: end: 20040312
  3. CORDARONE [Concomitant]
     Route: 048
  4. IKOREL [Concomitant]
     Route: 048

REACTIONS (1)
  - LEUKOPENIA [None]
